FAERS Safety Report 19890352 (Version 1)
Quarter: 2021Q3

REPORT INFORMATION
  Report Type: Report from Study
  Country: DE (occurrence: DE)
  Receive Date: 20210928
  Receipt Date: 20210928
  Transmission Date: 20211014
  Serious: Yes (Hospitalization)
  Sender: FDA-Public Use
  Company Number: DE-ROCHE-2918261

PATIENT
  Age: 71 Year
  Sex: Female
  Weight: 53 kg

DRUGS (5)
  1. OXALIPLATIN. [Suspect]
     Active Substance: OXALIPLATIN
     Indication: GASTRIC CANCER
     Dosage: ON 17/APR/2020, HE RECEIVED THE MOST RECENT DOSE OF OXALIPLATIN (131.75 MG).
     Route: 042
  2. DOCETAXEL. [Suspect]
     Active Substance: DOCETAXEL
     Indication: GASTRIC CANCER
     Dosage: ON 17/APR/2020, HE RECEIVED THE MOST RECENT DOSE OF DOCETAXEL (77.5 MG).
     Route: 042
  3. ATEZOLIZUMAB. [Suspect]
     Active Substance: ATEZOLIZUMAB
     Indication: GASTRIC CANCER
     Dosage: ON 17/APR/2020, SHE RECEIVED MOST RECENT DOSE OF ATEZOLIZUMAB.
     Route: 042
  4. FLUOROURACIL. [Suspect]
     Active Substance: FLUOROURACIL
     Indication: GASTRIC CANCER
     Dosage: ON 17/APR/2020, HE RECEIVED THE MOST RECENT DOSE OF FLUOROURACIL (4030 MG).
     Route: 042
  5. LEUCOVORIN. [Suspect]
     Active Substance: LEUCOVORIN
     Indication: GASTRIC CANCER
     Dosage: ON 17/APR/2020, HE RECEIVED THE MOST RECENT DOSE OF LEUCOVORIN (310 MG).
     Route: 042

REACTIONS (2)
  - Hyperthyroidism [Recovered/Resolved]
  - Endocrine disorder [Recovered/Resolved]

NARRATIVE: CASE EVENT DATE: 20200420
